FAERS Safety Report 7588797 (Version 8)
Quarter: 2012Q4

REPORT INFORMATION
  Report Type: 
  Country: US (occurrence: US)
  Receive Date: 20100916
  Receipt Date: 20121105
  Transmission Date: 20130627
  Serious: Yes (Death, Hospitalization)
  Sender: FDA-Public Use
  Company Number: US-JNJFOC-20100902861

PATIENT
  Age: 36 Year
  Sex: Female
  Weight: 64.41 kg

DRUGS (6)
  1. TYLENOL [Suspect]
     Route: 048
  2. TYLENOL [Suspect]
     Indication: PRODUCT USED FOR UNKNOWN INDICATION
     Route: 048
     Dates: start: 200810, end: 20081003
  3. TYLENOL PM [Suspect]
     Indication: INSOMNIA
     Route: 048
  4. ELAVIL [Concomitant]
  5. EFFEXOR [Concomitant]
  6. DOXYLAMINE [Concomitant]
     Indication: INSOMNIA

REACTIONS (54)
  - Acute hepatic failure [Fatal]
  - Renal failure acute [Fatal]
  - Toxicity to various agents [Fatal]
  - Liver injury [None]
  - Syncope [None]
  - Depressed level of consciousness [None]
  - Haematemesis [None]
  - Cognitive disorder [None]
  - Malaise [None]
  - Lethargy [None]
  - Somnolence [None]
  - Depressed level of consciousness [None]
  - Aggression [None]
  - Mental disorder [None]
  - Unresponsive to stimuli [None]
  - Areflexia [None]
  - Pupil fixed [None]
  - Overdose [None]
  - Blood glucose increased [None]
  - Blood calcium decreased [None]
  - International normalised ratio increased [None]
  - Activated partial thromboplastin time prolonged [None]
  - Analgesic drug level decreased [None]
  - Blood creatine phosphokinase increased [None]
  - Mental status changes [None]
  - Coagulopathy [None]
  - Hypokalaemia [None]
  - Hypoglycaemia [None]
  - Upper gastrointestinal haemorrhage [None]
  - Tachycardia [None]
  - Multi-organ failure [None]
  - Shock [None]
  - Toxic shock syndrome [None]
  - Blood albumin decreased [None]
  - Prothrombin time prolonged [None]
  - White blood cell count decreased [None]
  - Hepatic encephalopathy [None]
  - Metabolic acidosis [None]
  - Respiratory alkalosis [None]
  - Hyponatraemia [None]
  - Hyperkalaemia [None]
  - Hepatitis viral [None]
  - Hepato-lenticular degeneration [None]
  - Continuous haemodiafiltration [None]
  - Brain oedema [None]
  - Brain compression [None]
  - Brain herniation [None]
  - Sinusitis [None]
  - Ascites [None]
  - Pulmonary oedema [None]
  - Brain death [None]
  - Hepatic necrosis [None]
  - Hepatic steatosis [None]
  - Drug-induced liver injury [None]
